FAERS Safety Report 7987208-3 (Version None)
Quarter: 2011Q4

REPORT INFORMATION
  Report Type: 
  Country: None (occurrence: None)
  Receive Date: 20111216
  Receipt Date: 20111205
  Transmission Date: 20120403
  Serious: Yes (Death)
  Sender: FDA-Public Use
  Company Number: PHHY2011US108167

PATIENT
  Age: 53 Year
  Sex: Female

DRUGS (4)
  1. NAPROXEN [Suspect]
  2. METHYLPHENIDATE [Suspect]
     Route: 048
  3. DOXEPIN [Suspect]
  4. CLONAZEPAM [Suspect]

REACTIONS (2)
  - COMPLETED SUICIDE [None]
  - MULTIPLE DRUG OVERDOSE INTENTIONAL [None]
